FAERS Safety Report 7201928 (Version 2)
Quarter: 2012Q4

REPORT INFORMATION
  Report Type: 
  Country: US (occurrence: US)
  Receive Date: 20091207
  Receipt Date: 20120907
  Transmission Date: 20130627
  Serious: Yes (Other)
  Sender: FDA-Public Use
  Company Number: US-ROCHE-408536

PATIENT
  Age: 49 None
  Sex: Male
  Weight: 106.6 kg

DRUGS (2)
  1. PEGASYS [Suspect]
     Indication: HEPATITIS C
     Dosage: ROUTE REPORTED AS INJECTION.
     Route: 065
     Dates: start: 20040422, end: 20040428
  2. COPEGUS [Suspect]
     Indication: HEPATITIS C
     Route: 048
     Dates: start: 20040422, end: 20040428

REACTIONS (23)
  - Homicidal ideation [Recovering/Resolving]
  - Rheumatoid arthritis [Not Recovered/Not Resolved]
  - Cholelithiasis [Unknown]
  - Nephrolithiasis [Unknown]
  - Disorientation [Recovered/Resolved]
  - Anxiety [Not Recovered/Not Resolved]
  - Crying [Unknown]
  - Fatigue [Recovering/Resolving]
  - Somnolence [Unknown]
  - Viral load increased [Not Recovered/Not Resolved]
  - Depression [Recovering/Resolving]
  - Chest pain [Unknown]
  - Heart rate increased [Unknown]
  - Pain [Not Recovered/Not Resolved]
  - Fatigue [Not Recovered/Not Resolved]
  - Cough [Not Recovered/Not Resolved]
  - Migraine [Not Recovered/Not Resolved]
  - Hepatic cirrhosis [Unknown]
  - Mouth haemorrhage [Unknown]
  - Anal haemorrhage [Unknown]
  - Weight decreased [Unknown]
  - Arthralgia [Unknown]
  - Dizziness [Unknown]
